FAERS Safety Report 7596264-6 (Version None)
Quarter: 2011Q3

REPORT INFORMATION
  Report Type: 
  Country: None (occurrence: None)
  Receive Date: 20110707
  Receipt Date: 20110627
  Transmission Date: 20111222
  Serious: Yes (Death, Other)
  Sender: FDA-Public Use
  Company Number: US-CELGENEUS-163-21880-11063771

PATIENT
  Age: 62 Year
  Sex: Female

DRUGS (11)
  1. DECADRON [Concomitant]
     Indication: MULTIPLE MYELOMA
     Route: 065
     Dates: start: 20081001
  2. LEVOTHROID [Concomitant]
     Route: 065
  3. LUMIGAN [Concomitant]
     Route: 065
  4. REVLIMID [Suspect]
     Dosage: 20 MILLIGRAM
     Route: 048
     Dates: start: 20081201, end: 20090601
  5. REVLIMID [Suspect]
     Dosage: 20 MILLIGRAM
     Route: 048
     Dates: end: 20101201
  6. WARFARIN SODIUM [Concomitant]
     Route: 065
  7. K-TAB [Concomitant]
     Route: 065
  8. FAMOTIDINE [Concomitant]
     Route: 065
  9. REVLIMID [Suspect]
     Indication: MULTIPLE MYELOMA
     Dosage: 25 MILLIGRAM
     Route: 048
     Dates: start: 20081001
  10. REVLIMID [Suspect]
     Dosage: 25 MILLIGRAM
     Route: 048
     Dates: start: 20101101
  11. TIMOLOL [Concomitant]
     Route: 065

REACTIONS (3)
  - CHEST PAIN [None]
  - DRUG INTOLERANCE [None]
  - DEATH [None]
